FAERS Safety Report 6189715-5 (Version None)
Quarter: 2009Q2

REPORT INFORMATION
  Report Type: 
  Country: None (occurrence: None)
  Receive Date: 20090514
  Receipt Date: 20090505
  Transmission Date: 20091009
  Serious: Yes (Other)
  Sender: FDA-Public Use
  Company Number: US-ROCHE-631326

PATIENT
  Age: 56 Year
  Sex: Female

DRUGS (3)
  1. BONIVA [Suspect]
     Indication: OSTEOPOROSIS
     Dosage: DOSE: 3 MG/3ML, LAST DOSE ADMINISTERED ON 01 MAY 2009
     Route: 042
     Dates: start: 20071101
  2. CALCIUM [Concomitant]
  3. VITAMINE D [Concomitant]

REACTIONS (2)
  - BLADDER CANCER [None]
  - INJECTION SITE REACTION [None]
